FAERS Safety Report 25169814 (Version 1)
Quarter: 2025Q2

REPORT INFORMATION
  Report Type: Spontaneous
  Country: US (occurrence: US)
  Receive Date: 20250407
  Receipt Date: 20250407
  Transmission Date: 20250716
  Serious: No
  Sender: ROCHE
  Company Number: US-ROCHE-10000249226

PATIENT
  Sex: Female
  Weight: 90.71 kg

DRUGS (1)
  1. OCREVUS [Suspect]
     Active Substance: OCRELIZUMAB
     Indication: Relapsing multiple sclerosis
     Route: 065
     Dates: start: 202402

REACTIONS (4)
  - Hypoaesthesia [Unknown]
  - Asthenia [Unknown]
  - Brain fog [Unknown]
  - Paraesthesia [Unknown]
